FAERS Safety Report 7332604-0 (Version None)
Quarter: 2011Q1

REPORT INFORMATION
  Report Type: 
  Country: None (occurrence: None)
  Receive Date: 20110304
  Receipt Date: 20110225
  Transmission Date: 20110831
  Serious: Yes (Hospitalization, Other)
  Sender: FDA-Public Use
  Company Number: US-US-EMD SERONO, INC.-234119J09USA

PATIENT
  Sex: Male

DRUGS (1)
  1. REBIF [Suspect]
     Indication: MULTIPLE SCLEROSIS
     Route: 058
     Dates: start: 20080805, end: 20101201

REACTIONS (9)
  - MENINGIOMA [None]
  - HEPATIC ENZYME INCREASED [None]
  - NASOPHARYNGITIS [None]
  - GAIT DISTURBANCE [None]
  - MULTIPLE SCLEROSIS RELAPSE [None]
  - FOOD CRAVING [None]
  - AMNESIA [None]
  - NEOPLASM PROGRESSION [None]
  - STRESS [None]
